FAERS Safety Report 25402739 (Version 2)
Quarter: 2025Q2

REPORT INFORMATION
  Report Type: Report from Study
  Country: US (occurrence: US)
  Receive Date: 20250605
  Receipt Date: 20250619
  Transmission Date: 20250717
  Serious: No
  Sender: MERCK SHARP & DOHME LLC
  Company Number: US-009507513-2292421

PATIENT
  Age: 45 Year
  Sex: Male
  Weight: 71.305 kg

DRUGS (5)
  1. JANUVIA [Suspect]
     Active Substance: SITAGLIPTIN PHOSPHATE
     Indication: Diabetes mellitus
     Route: 048
     Dates: start: 20240314, end: 20250509
  2. JARDIANCE [Concomitant]
     Active Substance: EMPAGLIFLOZIN
     Indication: Diabetes mellitus
     Route: 048
  3. BASAGLAR [Concomitant]
     Active Substance: INSULIN GLARGINE
     Indication: Diabetes mellitus
     Dosage: 80 U
     Route: 058
  4. METFORMIN HYDROCHLORIDE [Concomitant]
     Active Substance: METFORMIN HYDROCHLORIDE
     Indication: Diabetes mellitus
     Dosage: WITH MEALS
     Route: 048
  5. LISINOPRIL [Concomitant]
     Active Substance: LISINOPRIL
     Indication: Blood pressure abnormal
     Route: 048

REACTIONS (13)
  - Red blood cell count increased [Recovered/Resolved]
  - Blood glucose increased [Recovering/Resolving]
  - Blood creatinine decreased [Recovered/Resolved]
  - Glycosylated haemoglobin increased [Recovering/Resolving]
  - LDL/HDL ratio increased [Unknown]
  - Product dose omission issue [Unknown]
  - Haematocrit increased [Recovered/Resolved]
  - Product use issue [Unknown]
  - Blood cholesterol increased [Recovering/Resolving]
  - Blood triglycerides increased [Recovering/Resolving]
  - High density lipoprotein decreased [Recovering/Resolving]
  - Non-high-density lipoprotein cholesterol increased [Recovering/Resolving]
  - Total cholesterol/HDL ratio decreased [Recovering/Resolving]

NARRATIVE: CASE EVENT DATE: 20250312
